FAERS Safety Report 6818189-3 (Version None)
Quarter: 2010Q3

REPORT INFORMATION
  Report Type: 
  Country: None (occurrence: None)
  Receive Date: 20100706
  Receipt Date: 20070511
  Transmission Date: 20110219
  Serious: No
  Sender: FDA-Public Use
  Company Number: US-PFIZER INC-2007038014

PATIENT

DRUGS (2)
  1. AZITHROMYCIN [Suspect]
     Indication: BRONCHITIS
  2. AZITHROMYCIN [Suspect]
     Indication: ASTHMA

REACTIONS (2)
  - ASTHMA [None]
  - BRONCHITIS [None]
